FAERS Safety Report 5575519-0 (Version None)
Quarter: 2007Q4

REPORT INFORMATION
  Report Type: 
  Country: None (occurrence: None)
  Receive Date: 20071226
  Receipt Date: 20071213
  Transmission Date: 20080405
  Serious: Yes (Death)
  Sender: FDA-Public Use
  Company Number: GXBR2007US01962

PATIENT
  Sex: Female

DRUGS (4)
  1. ALPRAZOLAM [Suspect]
     Dosage: 2 MG, ORAL
     Route: 048
  2. OXYCODONE HCL [Suspect]
     Dosage: 30 MG, ORAL
     Route: 048
  3. CARISOPRODOL [Concomitant]
     Dosage: 350 MG, ORAL
     Route: 048
  4. HYDROCODONE BITARTRATE AND ACETAMINOPHEN [Suspect]
     Dosage: 10 MG/500MG, ORAL
     Route: 048

REACTIONS (1)
  - INCORRECT DOSE ADMINISTERED [None]
